FAERS Safety Report 18689596 (Version 1)
Quarter: 2020Q4

REPORT INFORMATION
  Report Type: Spontaneous
  Country: FR (occurrence: FR)
  Receive Date: 20201231
  Receipt Date: 20201231
  Transmission Date: 20210114
  Serious: No
  Sender: FDA-Public Use
  Company Number: FR-LUPIN PHARMACEUTICALS INC.-2020-11066

PATIENT
  Age: 56 Year

DRUGS (3)
  1. PHENELZINE [Suspect]
     Active Substance: PHENELZINE
     Indication: DEPRESSION
     Dosage: 45 MILLIGRAM, QD
     Route: 065
  2. PHENELZINE [Suspect]
     Active Substance: PHENELZINE
     Dosage: 75 MILLIGRAM, QD
     Route: 065
  3. KETAMINE [Suspect]
     Active Substance: KETAMINE
     Indication: DEPRESSION
     Dosage: UNK (72 HRS; SIX INFUSIONS)
     Route: 065

REACTIONS (2)
  - Drug ineffective [Unknown]
  - Off label use [Unknown]
